FAERS Safety Report 20052794 (Version 1)
Quarter: 2021Q4

REPORT INFORMATION
  Report Type: Report from Study
  Country: US (occurrence: US)
  Receive Date: 20211110
  Receipt Date: 20211110
  Transmission Date: 20220303
  Serious: Yes (Hospitalization)
  Sender: FDA-Public Use
  Company Number: US-MYLANLABS-2021M1082067

PATIENT
  Age: 72 Year
  Sex: Male

DRUGS (2)
  1. AMIODARONE [Suspect]
     Active Substance: AMIODARONE
     Indication: Ventricular fibrillation
     Dosage: UNK
     Route: 065
     Dates: end: 2013
  2. SOTALOL [Suspect]
     Active Substance: SOTALOL
     Indication: Ventricular fibrillation
     Dosage: UNK
     Route: 065
     Dates: start: 2013

REACTIONS (2)
  - Drug ineffective [Unknown]
  - Rash [Unknown]
